APPROVED DRUG PRODUCT: CLONIDINE HYDROCHLORIDE
Active Ingredient: CLONIDINE HYDROCHLORIDE
Strength: 0.1MG
Dosage Form/Route: TABLET;ORAL
Application: A070886 | Product #002 | TE Code: AB
Applicant: AUROBINDO PHARMA LTD
Approved: Aug 31, 1988 | RLD: No | RS: No | Type: RX